FAERS Safety Report 4644717-2 (Version None)
Quarter: 2005Q2

REPORT INFORMATION
  Report Type: 
  Country: None (occurrence: None)
  Receive Date: 20050422
  Receipt Date: 20050416
  Transmission Date: 20051028
  Serious: No
  Sender: FDA-Public Use
  Company Number: A044-002-005569

PATIENT
  Sex: Male

DRUGS (1)
  1. ARICEPT [Suspect]
     Dosage: 10 MG, 1 IN 1 D, ORAL
     Route: 048

REACTIONS (1)
  - INTESTINAL OBSTRUCTION [None]
